FAERS Safety Report 8289327-3 (Version None)
Quarter: 2012Q2

REPORT INFORMATION
  Report Type: 
  Country: None (occurrence: None)
  Receive Date: 20120417
  Receipt Date: 20120405
  Transmission Date: 20120825
  Serious: Yes (Other)
  Sender: FDA-Public Use
  Company Number: CA-JNJFOC-20120402661

PATIENT
  Sex: Female
  Weight: 50 kg

DRUGS (8)
  1. VITAMIN B-12 [Concomitant]
     Route: 065
  2. LOTEMAX [Concomitant]
     Route: 065
  3. LATANOPROST [Concomitant]
     Route: 065
  4. FOSAMAX [Concomitant]
     Route: 065
  5. REMICADE [Suspect]
     Indication: CROHN'S DISEASE
     Route: 042
     Dates: start: 20110105
  6. VALACYCLOVIR [Concomitant]
     Route: 065
  7. PREDNISONE TAB [Concomitant]
     Route: 065
  8. PENTASA [Concomitant]
     Route: 065

REACTIONS (1)
  - LACERATION [None]
